FAERS Safety Report 7920338-0 (Version None)
Quarter: 2011Q4

REPORT INFORMATION
  Report Type: 
  Country: None (occurrence: None)
  Receive Date: 20111117
  Receipt Date: 20111107
  Transmission Date: 20120403
  Serious: Yes (Other)
  Sender: FDA-Public Use
  Company Number: US-ELI_LILLY_AND_COMPANY-US201111003628

PATIENT
  Sex: Female

DRUGS (1)
  1. ZYPREXA [Suspect]
     Dosage: 7.5 MG, UNK

REACTIONS (3)
  - JOINT DISLOCATION [None]
  - FALL [None]
  - HIP FRACTURE [None]
